FAERS Safety Report 5262324-8 (Version None)
Quarter: 2007Q1

REPORT INFORMATION
  Report Type: 
  Country: None (occurrence: None)
  Receive Date: 20070308
  Receipt Date: 20070308
  Transmission Date: 20070707
  Serious: Yes (Death, Hospitalization)
  Sender: FDA-Public Use
  Company Number: None

PATIENT
  Sex: Female
  Weight: 21 kg

DRUGS (13)
  1. PEG-L-ASPARAGINASE (K-H) [Suspect]
     Dosage: 3575 IU
  2. DEXAMETHASONE [Suspect]
     Dosage: 147 MG
  3. VINCRISTINE SULFATE [Suspect]
     Dosage: 3.3 MG
  4. AMOXICILLIN [Concomitant]
  5. CLAVULANIC ACID [Concomitant]
  6. CHLORPROMAZINE [Concomitant]
  7. DICLOFENAC SODIUM [Concomitant]
  8. FLUCONAZOLE [Concomitant]
  9. HYOSCINE HBR HYT [Concomitant]
  10. MIDAZOLAM HCL [Concomitant]
  11. OMEPRAZOLE [Concomitant]
  12. ACETAMINOPHEN [Concomitant]
  13. SALBUTAMOL AEROSOL [Concomitant]

REACTIONS (17)
  - ACUTE HEPATIC FAILURE [None]
  - AMMONIA INCREASED [None]
  - APNOEA [None]
  - BONE PAIN [None]
  - BRADYCARDIA [None]
  - CARDIAC ARREST [None]
  - COAGULATION TEST ABNORMAL [None]
  - CYTOMEGALOVIRUS TEST POSITIVE [None]
  - HEPATIC STEATOSIS [None]
  - HEPATOMEGALY [None]
  - HYPONATRAEMIA [None]
  - KIDNEY ENLARGEMENT [None]
  - LOSS OF CONSCIOUSNESS [None]
  - PNEUMONIA STREPTOCOCCAL [None]
  - TACHYPNOEA [None]
  - TRANSAMINASES INCREASED [None]
  - URINE CYTOMEGALOVIRUS POSITIVE [None]
